FAERS Safety Report 9632882 (Version 1)
Quarter: 2013Q4

REPORT INFORMATION
  Report Type: Spontaneous
  Country: US (occurrence: US)
  Receive Date: 20131018
  Receipt Date: 20131018
  Transmission Date: 20140711
  Serious: Yes (Other)
  Sender: FDA-Public Use
  Company Number: US-ASTRAZENECA-2013SE75063

PATIENT
  Sex: Male

DRUGS (3)
  1. SEROQUEL IR [Suspect]
     Route: 048
  2. SEROQUEL IR [Suspect]
     Dosage: GENERIC
     Route: 065
  3. SEROQUEL IR [Suspect]
     Route: 048

REACTIONS (1)
  - Electrocardiogram QT prolonged [Recovered/Resolved]
